FAERS Safety Report 15134834 (Version 1)
Quarter: 2018Q3

REPORT INFORMATION
  Report Type: Spontaneous
  Country: US (occurrence: US)
  Receive Date: 20180615
  Receipt Date: 20180615
  Transmission Date: 20181010
  Serious: Yes (Disabling)
  Sender: FDA-Public Use
  Company Number: None

PATIENT
  Age: 51 Year
  Sex: Female
  Weight: 81 kg

DRUGS (2)
  1. CHLORTHALIDONE. [Suspect]
     Active Substance: CHLORTHALIDONE
  2. LOSARTAN POTASSIUM 100 MG [Suspect]
     Active Substance: LOSARTAN POTASSIUM
     Indication: HYPERTENSION
     Route: 048

REACTIONS (14)
  - Joint injury [None]
  - Meniscus injury [None]
  - Dry mouth [None]
  - Joint instability [None]
  - Arthropathy [None]
  - Vertigo [None]
  - Oedema peripheral [None]
  - Arthralgia [None]
  - Autoimmune disorder [None]
  - Drug ineffective [None]
  - Muscular weakness [None]
  - Dry eye [None]
  - Arthritis [None]
  - Gait disturbance [None]

NARRATIVE: CASE EVENT DATE: 20140401
